FAERS Safety Report 16475463 (Version 2)
Quarter: 2020Q3

REPORT INFORMATION
  Report Type: Report from Study
  Country: US (occurrence: US)
  Receive Date: 20190625
  Receipt Date: 20200713
  Transmission Date: 20201102
  Serious: No
  Sender: FDA-Public Use
  Company Number: PHHY2019US142582

PATIENT
  Age: 59 Year
  Sex: Male

DRUGS (1)
  1. GILENYA [Suspect]
     Active Substance: FINGOLIMOD HYDROCHLORIDE
     Indication: MULTIPLE SCLEROSIS
     Dosage: UNK, QD
     Route: 048

REACTIONS (9)
  - Seborrhoeic dermatitis [Recovered/Resolved]
  - Seborrhoeic keratosis [Recovered/Resolved]
  - Atrioventricular block first degree [Not Recovered/Not Resolved]
  - Scar [Not Recovered/Not Resolved]
  - Blood bilirubin increased [Unknown]
  - Abscess sterile [Unknown]
  - Tinea pedis [Recovered/Resolved]
  - Aspartate aminotransferase increased [Unknown]
  - Onychomycosis [Recovered/Resolved]

NARRATIVE: CASE EVENT DATE: 20150122
